FAERS Safety Report 16127633 (Version 1)
Quarter: 2019Q1

REPORT INFORMATION
  Report Type: Spontaneous
  Country: US (occurrence: US)
  Receive Date: 20190328
  Receipt Date: 20190328
  Transmission Date: 20190418
  Serious: No
  Sender: FDA-Public Use
  Company Number: US-PFIZER INC-2019126408

PATIENT
  Age: 65 Year
  Sex: Female
  Weight: 128 kg

DRUGS (7)
  1. VESICARE [Concomitant]
     Active Substance: SOLIFENACIN SUCCINATE
     Indication: INCONTINENCE
     Dosage: UNK, 1X/DAY
     Dates: start: 201710
  2. TOPIRAMATE. [Concomitant]
     Active Substance: TOPIRAMATE
     Indication: OVERWEIGHT
     Dosage: 25 MG, 1X/DAY (TAKEN AFTERNOONS ABOUT 1:00PM)
     Route: 048
  3. AMLODIPINE BESILATE [Suspect]
     Active Substance: AMLODIPINE BESYLATE
     Indication: BLOOD PRESSURE ABNORMAL
     Dosage: 10 MG, 1X/DAY
     Route: 048
     Dates: start: 201809
  4. LISINOPRIL. [Concomitant]
     Active Substance: LISINOPRIL
     Indication: BLOOD PRESSURE ABNORMAL
     Dosage: UNK
  5. PHENTERMINE. [Concomitant]
     Active Substance: PHENTERMINE
     Indication: OVERWEIGHT
     Dosage: 37.5 MG, 1X/DAY
     Route: 048
  6. SERTRALINE [Concomitant]
     Active Substance: SERTRALINE HYDROCHLORIDE
     Indication: DEPRESSED MOOD
     Dosage: UNK, DAILY (HALF A PILL DAILY BY MOUTH)
     Route: 048
  7. MYRBETRIQ [Concomitant]
     Active Substance: MIRABEGRON
     Indication: INCONTINENCE
     Dosage: UNK
     Dates: start: 201710

REACTIONS (2)
  - Trigger finger [Not Recovered/Not Resolved]
  - Weight decreased [Not Recovered/Not Resolved]

NARRATIVE: CASE EVENT DATE: 20190116
